FAERS Safety Report 4277740-0 (Version None)
Quarter: 2004Q1

REPORT INFORMATION
  Report Type: 
  Country: None (occurrence: None)
  Receive Date: 20040121
  Receipt Date: 20040109
  Transmission Date: 20041129
  Serious: Yes (Hospitalization)
  Sender: FDA-Public Use
  Company Number: ZONI001294

PATIENT
  Age: 33 Year
  Sex: Female

DRUGS (2)
  1. EXCEGRAN (ZONISAMIDE) [Suspect]
     Indication: EPILEPSY
     Dosage: 200 MG ORAL
     Route: 048
     Dates: start: 20030728, end: 20030909
  2. DEPAKENE [Concomitant]

REACTIONS (6)
  - ANOXIA [None]
  - EOSINOPHILIC PNEUMONIA [None]
  - HYPERSENSITIVITY [None]
  - LUNG INFILTRATION [None]
  - MALAISE [None]
  - RASH [None]
